FAERS Safety Report 9280928 (Version 1)
Quarter: 2013Q2

REPORT INFORMATION
  Report Type: Spontaneous
  Country: US (occurrence: US)
  Receive Date: 20130509
  Receipt Date: 20130509
  Transmission Date: 20140414
  Serious: No
  Sender: FDA-Public Use
  Company Number: US-009507513-1305USA001066

PATIENT
  Age: 28 Year
  Sex: Female

DRUGS (1)
  1. NUVARING [Suspect]
     Dosage: 1 DF, UNK
     Route: 067
     Dates: start: 2008

REACTIONS (1)
  - Inappropriate schedule of drug administration [Unknown]
